FAERS Safety Report 16553349 (Version 1)
Quarter: 2019Q3

REPORT INFORMATION
  Report Type: Report from Study
  Country: US (occurrence: US)
  Receive Date: 20190710
  Receipt Date: 20190710
  Transmission Date: 20191004
  Serious: Yes (Other)
  Sender: FDA-Public Use
  Company Number: PHEH2019US028306

PATIENT
  Sex: Female

DRUGS (1)
  1. ENTRESTO [Suspect]
     Active Substance: SACUBITRIL\VALSARTAN
     Indication: PRODUCT USED FOR UNKNOWN INDICATION
     Route: 048

REACTIONS (7)
  - Arthralgia [Unknown]
  - Balance disorder [Unknown]
  - Fall [Unknown]
  - Pelvic fracture [Unknown]
  - Road traffic accident [Unknown]
  - Renal impairment [Recovering/Resolving]
  - Pain in extremity [Unknown]
